FAERS Safety Report 5903838-4 (Version None)
Quarter: 2008Q3

REPORT INFORMATION
  Report Type: 
  Country: None (occurrence: None)
  Receive Date: 20080919
  Receipt Date: 20080819
  Transmission Date: 20090109
  Serious: Yes (Other)
  Sender: FDA-Public Use
  Company Number: US-WYE-H05630908

PATIENT
  Age: 43 Year
  Sex: Female
  Weight: 83.08 kg

DRUGS (6)
  1. PRISTIQ [Suspect]
     Indication: DEPRESSION
     Dosage: 50 MG 1X PER 1 DAY, ORAL
     Route: 048
     Dates: start: 20080630, end: 20080722
  2. THYROID TAB [Concomitant]
  3. INDOCIN [Concomitant]
  4. PRANDIN [Concomitant]
  5. NEURONTIN [Concomitant]
  6. ZOCOR [Concomitant]

REACTIONS (1)
  - CONVULSION [None]
